FAERS Safety Report 26197116 (Version 1)
Quarter: 2025Q4

REPORT INFORMATION
  Report Type: Spontaneous
  Country: CN (occurrence: CN)
  Receive Date: 20251224
  Receipt Date: 20251224
  Transmission Date: 20260117
  Serious: Yes (Other)
  Sender: AMGEN
  Company Number: CN-AMGEN-CHNSP2025251053

PATIENT
  Age: 62 Year
  Sex: Female
  Weight: 65 kg

DRUGS (1)
  1. BLINCYTO [Suspect]
     Active Substance: BLINATUMOMAB
     Indication: Acute lymphocytic leukaemia
     Dosage: 9 MICROGRAM, FREQUENCY 1
     Route: 065
     Dates: start: 20251205, end: 20251206

REACTIONS (6)
  - Temperature intolerance [Recovered/Resolved]
  - Hyperhidrosis [Recovered/Resolved]
  - Blood pressure decreased [Recovered/Resolved]
  - Chills [Recovered/Resolved]
  - Headache [Recovered/Resolved]
  - Pyrexia [Recovered/Resolved]

NARRATIVE: CASE EVENT DATE: 20251206
